FAERS Safety Report 18589567 (Version 2)
Quarter: 2021Q1

REPORT INFORMATION
  Report Type: Report from Study
  Country: DE (occurrence: DE)
  Receive Date: 20201208
  Receipt Date: 20210210
  Transmission Date: 20210419
  Serious: Yes (Hospitalization, Other)
  Sender: FDA-Public Use
  Company Number: DE-TEVA-2020-DE-1855052

PATIENT
  Age: 30 Year
  Sex: Female

DRUGS (1)
  1. COPAXONE [Suspect]
     Active Substance: GLATIRAMER ACETATE
     Indication: MULTIPLE SCLEROSIS
     Dates: start: 20180810

REACTIONS (3)
  - Ectopic pregnancy [Recovered/Resolved]
  - Maternal exposure during pregnancy [Unknown]
  - Ectopic pregnancy termination [Recovered/Resolved]

NARRATIVE: CASE EVENT DATE: 2020
